FAERS Safety Report 15266487 (Version 1)
Quarter: 2018Q3

REPORT INFORMATION
  Report Type: Report from Study
  Country: FR (occurrence: US)
  Receive Date: 20180810
  Receipt Date: 20180810
  Transmission Date: 20181010
  Serious: Yes (Hospitalization, Other)
  Sender: FDA-Public Use
  Company Number: FR-BAYER-2018-147865

PATIENT
  Age: 41 Year
  Sex: Female

DRUGS (2)
  1. LOW DOSE ASPIRIN [Suspect]
     Active Substance: ASPIRIN
     Indication: ANTIPHOSPHOLIPID SYNDROME
  2. HEPARIN [Suspect]
     Active Substance: HEPARIN SODIUM

REACTIONS (5)
  - Pre-eclampsia [None]
  - Foetal death [None]
  - Vaginal haemorrhage [Recovered/Resolved]
  - Exposure during pregnancy [None]
  - Labelled drug-drug interaction medication error [None]
